FAERS Safety Report 20294970 (Version 1)
Quarter: 2022Q1

REPORT INFORMATION
  Report Type: Spontaneous
  Country: US (occurrence: US)
  Receive Date: 20220104
  Receipt Date: 20220104
  Transmission Date: 20220423
  Serious: Yes (Hospitalization, Other)
  Sender: FDA-Public Use
  Company Number: US-ALVOGEN-2021-ALVOGEN-118032

PATIENT
  Age: 6 Month
  Sex: Female

DRUGS (1)
  1. OSELTAMIVIR [Suspect]
     Active Substance: OSELTAMIVIR
     Indication: Influenza
     Dosage: 6 MG/ML TWICE A DAY
     Route: 048
     Dates: start: 20190216, end: 20190217

REACTIONS (6)
  - Loss of consciousness [Recovering/Resolving]
  - Hypothermia [Recovering/Resolving]
  - Dehydration [Recovering/Resolving]
  - Poor feeding infant [Recovering/Resolving]
  - Diarrhoea [Recovering/Resolving]
  - Lethargy [Recovering/Resolving]

NARRATIVE: CASE EVENT DATE: 20190217
